FAERS Safety Report 16114008 (Version 1)
Quarter: 2019Q1

REPORT INFORMATION
  Report Type: Spontaneous
  Country: US (occurrence: US)
  Receive Date: 20190325
  Receipt Date: 20190325
  Transmission Date: 20190418
  Serious: No
  Sender: FDA-Public Use
  Company Number: US-ALLERGAN-1827457US

PATIENT
  Age: 55 Year
  Sex: Female

DRUGS (1)
  1. LATISSE [Suspect]
     Active Substance: BIMATOPROST
     Indication: PRODUCT USED FOR UNKNOWN INDICATION
     Dosage: UNK, QHS
     Route: 061

REACTIONS (4)
  - Eyelid margin crusting [Recovered/Resolved]
  - Eye discharge [Recovered/Resolved]
  - Eye irritation [Unknown]
  - Eye swelling [Recovered/Resolved]
